FAERS Safety Report 16107030 (Version 2)
Quarter: 2019Q1

REPORT INFORMATION
  Report Type: Spontaneous
  Country: US (occurrence: US)
  Receive Date: 20190322
  Receipt Date: 20190328
  Transmission Date: 20190418
  Serious: Yes (Hospitalization)
  Sender: FDA-Public Use
  Company Number: US-PFIZER INC-2019124446

PATIENT
  Age: 70 Year
  Sex: Male
  Weight: 113 kg

DRUGS (3)
  1. IRINOTECAN HCL [Suspect]
     Active Substance: IRINOTECAN HYDROCHLORIDE
     Indication: PANCREATIC CARCINOMA
     Dosage: 356 MG, UNK
     Route: 042
     Dates: start: 20181114
  2. IRINOTECAN HCL [Suspect]
     Active Substance: IRINOTECAN HYDROCHLORIDE
     Dosage: UNK
  3. OXALIPLATIN. [Suspect]
     Active Substance: OXALIPLATIN
     Indication: PANCREATIC CARCINOMA
     Dosage: 201.45 MG, UNK (EVERY 2 WEEKS)
     Route: 042
     Dates: start: 20181114

REACTIONS (2)
  - Dysarthria [Unknown]
  - Feeling hot [Unknown]

NARRATIVE: CASE EVENT DATE: 20181114
